FAERS Safety Report 22976792 (Version 3)
Quarter: 2023Q4

REPORT INFORMATION
  Report Type: Report from Study
  Country: US (occurrence: US)
  Receive Date: 20230925
  Receipt Date: 20231213
  Transmission Date: 20240110
  Serious: Yes (Other)
  Sender: FDA-Public Use
  Company Number: US-002147023-NVSC2023US205818

PATIENT
  Sex: Female

DRUGS (1)
  1. KISQALI [Suspect]
     Active Substance: RIBOCICLIB
     Indication: Product used for unknown indication
     Dosage: 600 MG, QD
     Route: 048

REACTIONS (8)
  - Breast cancer [Unknown]
  - Metastases to bone [Unknown]
  - Femur fracture [Unknown]
  - Electrocardiogram abnormal [Unknown]
  - Heart rate increased [Unknown]
  - Viral infection [Unknown]
  - Lower limb fracture [Unknown]
  - Drug ineffective [Unknown]
